FAERS Safety Report 10339243 (Version 1)
Quarter: 2014Q3

REPORT INFORMATION
  Report Type: Spontaneous
  Country: US (occurrence: US)
  Receive Date: 20140724
  Receipt Date: 20140724
  Transmission Date: 20150326
  Serious: Yes (Hospitalization)
  Sender: FDA-Public Use
  Company Number: US-SA-2014SA097392

PATIENT
  Age: 50 Year
  Sex: Male

DRUGS (8)
  1. FOLINIC ACID [Concomitant]
     Active Substance: LEUCOVORIN
     Route: 042
  2. ZALTRAP [Suspect]
     Active Substance: ZIV-AFLIBERCEPT
     Indication: PRODUCT USED FOR UNKNOWN INDICATION
     Route: 042
     Dates: start: 20140603, end: 20140603
  3. FOLINIC ACID [Concomitant]
     Active Substance: LEUCOVORIN
     Route: 042
     Dates: start: 20140603, end: 20140603
  4. FLUOROURACIL. [Concomitant]
     Active Substance: FLUOROURACIL
     Route: 042
     Dates: start: 20140603, end: 20140603
  5. IRINOTECAN [Concomitant]
     Active Substance: IRINOTECAN
     Route: 042
  6. ZALTRAP [Suspect]
     Active Substance: ZIV-AFLIBERCEPT
     Indication: PRODUCT USED FOR UNKNOWN INDICATION
     Route: 042
  7. FLUOROURACIL. [Concomitant]
     Active Substance: FLUOROURACIL
     Route: 042
  8. IRINOTECAN [Concomitant]
     Active Substance: IRINOTECAN
     Route: 042
     Dates: start: 20140603, end: 20140603

REACTIONS (1)
  - Colitis [Unknown]
